FAERS Safety Report 6592402-2 (Version None)
Quarter: 2010Q1

REPORT INFORMATION
  Report Type: 
  Country: None (occurrence: None)
  Receive Date: 20100221
  Receipt Date: 20091007
  Transmission Date: 20100710
  Serious: No
  Sender: FDA-Public Use
  Company Number: US-ALLERGAN-0913915US

PATIENT
  Sex: Female

DRUGS (4)
  1. BOTOX COSMETIC [Suspect]
     Indication: SKIN WRINKLING
     Dosage: UNK UNITS, SINGLE
     Route: 030
     Dates: start: 20090909, end: 20090909
  2. LEXAPRO [Concomitant]
  3. MAXZIDE [Concomitant]
  4. ADDERALL 30 [Concomitant]

REACTIONS (1)
  - EYELID PTOSIS [None]
